FAERS Safety Report 5864713-7 (Version None)
Quarter: 2008Q3

REPORT INFORMATION
  Report Type: 
  Country: None (occurrence: None)
  Receive Date: 20080829
  Receipt Date: 20080611
  Transmission Date: 20090109
  Serious: No
  Sender: FDA-Public Use
  Company Number: US-BAYER-200826383NA

PATIENT
  Age: 27 Year
  Sex: Female
  Weight: 80 kg

DRUGS (3)
  1. MIRENA [Suspect]
     Indication: CONTRACEPTION
     Route: 015
  2. ABT [Concomitant]
     Indication: CHLAMYDIAL INFECTION
  3. FLAGYL [Concomitant]
     Indication: VAGINAL ODOUR

REACTIONS (4)
  - AMENORRHOEA [None]
  - CHLAMYDIAL INFECTION [None]
  - GENITAL PAIN [None]
  - VAGINAL ODOUR [None]
